FAERS Safety Report 6399971-6 (Version None)
Quarter: 2009Q4

REPORT INFORMATION
  Report Type: 
  Country: None (occurrence: None)
  Receive Date: 20091014
  Receipt Date: 20071119
  Transmission Date: 20100525
  Serious: Yes (Hospitalization, Other)
  Sender: FDA-Public Use
  Company Number: US-ASTRAZENECA-2006UW12326

PATIENT
  Age: 53 Year
  Sex: Female
  Weight: 70.3 kg

DRUGS (24)
  1. SEROQUEL [Suspect]
     Route: 048
     Dates: start: 20060101
  2. SEROQUEL [Suspect]
     Route: 048
     Dates: start: 20060323
  3. ZYPREXA [Suspect]
     Indication: DEPRESSION
     Route: 048
     Dates: start: 20050223
  4. ZYPREXA [Suspect]
     Indication: PSYCHOTIC DISORDER
     Route: 048
     Dates: start: 20050223
  5. CISAPRIDE [Concomitant]
     Route: 048
     Dates: start: 19981209
  6. FLUOXETINE [Concomitant]
     Route: 048
     Dates: start: 19981209
  7. REGLAN [Concomitant]
     Indication: NAUSEA
     Dosage: 15MG - 80MG
     Route: 048
     Dates: start: 19981210
  8. REGLAN [Concomitant]
     Indication: VOMITING
     Dosage: 15MG - 80MG
     Route: 048
     Dates: start: 19981210
  9. PRILOSEC [Concomitant]
     Route: 048
     Dates: start: 19981210
  10. VISTARYL [Concomitant]
     Indication: SLEEP DISORDER
     Dosage: 250MG AS REQUIRED
     Route: 048
     Dates: start: 19940412
  11. NAPROSYN [Concomitant]
     Indication: PAIN
     Dosage: 250MG AS REQUIRED
     Route: 048
     Dates: start: 19940412
  12. DOXEPIN HCL [Concomitant]
     Dosage: 25MG TO 100MG
     Route: 048
     Dates: start: 19880323
  13. LOPRESSOR [Concomitant]
     Indication: HYPERTENSION
     Route: 048
     Dates: start: 20060303
  14. TAPAZOLE [Concomitant]
     Indication: HYPERTHYROIDISM
     Route: 048
     Dates: start: 20030101
  15. PREMARIN [Concomitant]
     Dates: start: 20050223
  16. LIPITOR [Concomitant]
     Indication: HYPERLIPIDAEMIA
     Dates: start: 20060119
  17. BENICAR [Concomitant]
     Indication: BLOOD PRESSURE
     Dates: start: 20060119
  18. ASPIRIN [Concomitant]
     Dates: start: 20060119
  19. CARDIZEM CD [Concomitant]
     Indication: BLOOD PRESSURE
     Dosage: 90MG TO 120MG
     Dates: start: 20060119
  20. RESTORIL [Concomitant]
     Indication: SLEEP DISORDER
     Route: 048
     Dates: start: 20060119
  21. ATIVAN [Concomitant]
     Indication: ANXIETY
     Route: 048
     Dates: start: 20060119
  22. VALIUM [Concomitant]
     Route: 048
     Dates: start: 19770601
  23. CELEBREX [Concomitant]
     Dates: start: 20041017
  24. ZANTAC [Concomitant]
     Indication: GASTRITIS
     Dates: start: 19980822

REACTIONS (13)
  - ANXIETY [None]
  - BLOOD CHOLESTEROL INCREASED [None]
  - CYST [None]
  - DIABETES MELLITUS [None]
  - GASTRIC ULCER [None]
  - GLUCOSE TOLERANCE IMPAIRED [None]
  - HYPERGLYCAEMIA [None]
  - HYPERLIPIDAEMIA [None]
  - LIMB INJURY [None]
  - OBESITY [None]
  - PANCREATITIS [None]
  - PANIC ATTACK [None]
  - TARDIVE DYSKINESIA [None]
